FAERS Safety Report 9921328 (Version 1)
Quarter: 2014Q1

REPORT INFORMATION
  Report Type: Spontaneous
  Country: DE (occurrence: DE)
  Receive Date: 20140225
  Receipt Date: 20140225
  Transmission Date: 20141002
  Serious: Yes (Other)
  Sender: FDA-Public Use
  Company Number: PHHY2014DE021387

PATIENT
  Age: 26 Year
  Sex: Female

DRUGS (1)
  1. GILENYA [Suspect]
     Dosage: 0.5 MG, QD
     Route: 048
     Dates: start: 201309

REACTIONS (5)
  - Paranoia [Unknown]
  - Panic attack [Unknown]
  - Anxiety [Unknown]
  - Abnormal behaviour [Unknown]
  - Self injurious behaviour [Unknown]
